FAERS Safety Report 17158177 (Version 1)
Quarter: 2019Q4

REPORT INFORMATION
  Report Type: Spontaneous
  Country: US (occurrence: US)
  Receive Date: 20191122
  Receipt Date: 20191122
  Transmission Date: 20200122
  Serious: Yes (Hospitalization)
  Sender: FDA-Public Use
  Company Number: None

PATIENT
  Age: 45 Year
  Sex: Female

DRUGS (1)
  1. MAVYRET [Suspect]
     Active Substance: GLECAPREVIR\PIBRENTASVIR
     Dosage: START OF THERAPY 26-NOV-2019
     Route: 048
     Dates: start: 2019

REACTIONS (1)
  - Arthritis [None]

NARRATIVE: CASE EVENT DATE: 20191004
